FAERS Safety Report 7563618-3 (Version None)
Quarter: 2011Q2

REPORT INFORMATION
  Report Type: 
  Country: None (occurrence: None)
  Receive Date: 20110622
  Receipt Date: 20110613
  Transmission Date: 20111010
  Serious: Yes (Hospitalization, Other)
  Sender: FDA-Public Use
  Company Number: DE-BRISTOL-MYERS SQUIBB COMPANY-14934442

PATIENT
  Age: 74 Year
  Sex: Male

DRUGS (3)
  1. MARCUMAR [Concomitant]
     Indication: ATRIAL FIBRILLATION
  2. PLACEBO [Suspect]
     Indication: THROMBOSIS PROPHYLAXIS
     Route: 048
     Dates: start: 20071015, end: 20100113
  3. WARFARIN SODIUM [Suspect]
     Indication: THROMBOSIS PROPHYLAXIS
     Route: 048
     Dates: start: 20071015, end: 20100113

REACTIONS (2)
  - DUODENAL ULCER HAEMORRHAGE [None]
  - PANCREATIC CARCINOMA [None]
